FAERS Safety Report 10899794 (Version 4)
Quarter: 2015Q4

REPORT INFORMATION
  Report Type: Spontaneous
  Country: US (occurrence: US)
  Receive Date: 20150310
  Receipt Date: 20151106
  Transmission Date: 20160304
  Serious: No
  Sender: FDA-Public Use
  Company Number: US-GLAXOSMITHKLINE-US2015017085

PATIENT
  Sex: Female

DRUGS (2)
  1. LAMICTAL [Suspect]
     Active Substance: LAMOTRIGINE
     Indication: SEIZURE
     Dosage: 200 MG, BID
     Route: 048
     Dates: start: 2011
  2. LAMICTAL [Suspect]
     Active Substance: LAMOTRIGINE
     Dosage: 350 MG, UNK
     Route: 065

REACTIONS (4)
  - Exposure during pregnancy [Unknown]
  - Drug intolerance [Unknown]
  - Anticonvulsant drug level below therapeutic [Unknown]
  - Maternal exposure before pregnancy [Unknown]
